FAERS Safety Report 19005277 (Version 2)
Quarter: 2022Q2

REPORT INFORMATION
  Report Type: Report from Study
  Country: DE (occurrence: DE)
  Receive Date: 20210313
  Receipt Date: 20220605
  Transmission Date: 20220721
  Serious: Yes (Death, Other)
  Sender: FDA-Public Use
  Company Number: DE-BRISTOL-MYERS SQUIBB COMPANY-BMS-2021-025071

PATIENT
  Age: 76 Year
  Sex: Female

DRUGS (4)
  1. NIVOLUMAB [Suspect]
     Active Substance: NIVOLUMAB
     Indication: Squamous cell carcinoma of head and neck
     Route: 042
     Dates: start: 20180507, end: 20181011
  2. MCP AL [Concomitant]
     Indication: Neoplasm
     Dosage: ONGOING
  3. DOXEPIN HYDROCHLORIDE [Concomitant]
     Active Substance: DOXEPIN HYDROCHLORIDE
     Indication: Neoplasm
     Dosage: ONGOING
  4. TRAMADOL [Concomitant]
     Active Substance: TRAMADOL
     Indication: Neoplasm
     Dosage: ONGOING

REACTIONS (1)
  - Malignant neoplasm progression [Fatal]

NARRATIVE: CASE EVENT DATE: 20200707
